FAERS Safety Report 19066049 (Version 1)
Quarter: 2021Q1

REPORT INFORMATION
  Report Type: Spontaneous
  Country: BG (occurrence: BG)
  Receive Date: 20210327
  Receipt Date: 20210327
  Transmission Date: 20210420
  Serious: Yes (Death)
  Sender: FDA-Public Use
  Company Number: BG-ROCHE-2796614

PATIENT
  Age: 64 Year
  Sex: Male

DRUGS (1)
  1. MABTHERA [Suspect]
     Active Substance: RITUXIMAB
     Indication: GRANULOMATOSIS WITH POLYANGIITIS
     Dosage: 2 VIALS OF 100 MG ON DAYS 0, 7, 14, AND 21 FOLLOWED BY A NEW CYCLE OF 1 VIAL OF 500 MG ON DAYS 0, 7
     Route: 041
     Dates: start: 20190920, end: 20201029

REACTIONS (1)
  - COVID-19 [Fatal]
